FAERS Safety Report 24095418 (Version 1)
Quarter: 2024Q3

REPORT INFORMATION
  Report Type: Spontaneous
  Country: CA (occurrence: CA)
  Receive Date: 20240716
  Receipt Date: 20240716
  Transmission Date: 20241016
  Serious: Yes (Other)
  Sender: CELLTRION
  Company Number: CA-CELLTRION INC.-2023CA009006

PATIENT

DRUGS (13)
  1. ADALIMUMAB [Suspect]
     Active Substance: ADALIMUMAB\ISOPROPYL ALCOHOL
     Indication: Crohn^s disease
     Dosage: 160.0 MILLIGRAM
     Route: 058
  2. ADALIMUMAB [Suspect]
     Active Substance: ADALIMUMAB\ISOPROPYL ALCOHOL
     Dosage: 40.0 MILLIGRAM, 1 EVERY 1 WEEKS
     Route: 058
  3. ADALIMUMAB [Suspect]
     Active Substance: ADALIMUMAB\ISOPROPYL ALCOHOL
     Dosage: 40.0 MILLIGRAM
     Route: 058
  4. ADALIMUMAB [Suspect]
     Active Substance: ADALIMUMAB\ISOPROPYL ALCOHOL
     Dosage: 40.0 MILLIGRAM
     Route: 058
  5. ADALIMUMAB [Suspect]
     Active Substance: ADALIMUMAB\ISOPROPYL ALCOHOL
     Dosage: 160.0 MILLIGRAM
     Route: 058
  6. ADALIMUMAB [Suspect]
     Active Substance: ADALIMUMAB\ISOPROPYL ALCOHOL
     Dosage: 40.0 MILLIGRAM
     Route: 058
  7. ADALIMUMAB [Suspect]
     Active Substance: ADALIMUMAB\ISOPROPYL ALCOHOL
     Dosage: 40.0 MILLIGRAM
     Route: 058
  8. ADALIMUMAB [Suspect]
     Active Substance: ADALIMUMAB\ISOPROPYL ALCOHOL
     Dosage: 40.0 MILLIGRAM, 1 EVERY 1 WEEKS
     Route: 058
  9. FENTANYL [Concomitant]
     Active Substance: FENTANYL\FENTANYL CITRATE
     Dosage: 100.0 MICROGRAM
     Route: 065
  10. MIDAZOLAM [Concomitant]
     Active Substance: MIDAZOLAM
     Dosage: 4.0 MILLIGRAM
     Route: 065
  11. PENTASA [Concomitant]
     Active Substance: MESALAMINE
     Route: 065
  12. RISANKIZUMAB [Concomitant]
     Active Substance: RISANKIZUMAB
     Dosage: UNK
     Route: 065
  13. RISANKIZUMAB [Concomitant]
     Active Substance: RISANKIZUMAB
     Dosage: UNK
     Route: 065

REACTIONS (16)
  - Colitis [Recovered/Resolved]
  - Joint swelling [Recovered/Resolved]
  - Musculoskeletal stiffness [Recovered/Resolved]
  - Oedema mucosal [Recovered/Resolved]
  - Peritoneal perforation [Recovered/Resolved]
  - Diarrhoea [Recovered/Resolved]
  - Faecal calprotectin increased [Recovered/Resolved]
  - Proctitis [Recovered/Resolved]
  - Abdominal pain [Recovered/Resolved]
  - Gastrointestinal carcinoma [Recovered/Resolved]
  - Rectal haemorrhage [Recovered/Resolved]
  - Abscess [Recovered/Resolved]
  - Inflammation [Recovered/Resolved]
  - Pain in extremity [Recovered/Resolved]
  - Rash [Recovered/Resolved]
  - Therapy partial responder [Recovered/Resolved]
